FAERS Safety Report 7440888-3 (Version None)
Quarter: 2011Q2

REPORT INFORMATION
  Report Type: 
  Country: None (occurrence: None)
  Receive Date: 20110427
  Receipt Date: 20110420
  Transmission Date: 20111010
  Serious: Yes (Other)
  Sender: FDA-Public Use
  Company Number: US-ROXANE LABORATORIES, INC.-2011-RO-00546RO

PATIENT
  Age: 50 Year
  Sex: Female
  Weight: 79 kg

DRUGS (9)
  1. DEXAMETHASONE [Suspect]
     Indication: GLIOBLASTOMA MULTIFORME
     Dosage: 8 MG
     Dates: start: 20081201
  2. PHENYTOIN [Suspect]
     Indication: CONVULSION
     Dosage: 300 MG
     Dates: end: 20090101
  3. ESCITALOPRAM [Suspect]
  4. RANITIDINE [Suspect]
  5. MULTI-VITAMINS [Concomitant]
  6. LEVETIRACETAM [Suspect]
     Dosage: 2250 MG
     Dates: start: 20090201, end: 20090409
  7. LEVETIRACETAM [Suspect]
     Dosage: 2000 MG
     Dates: start: 20090101, end: 20090201
  8. ADVAIR DISKUS 100/50 [Suspect]
  9. LEVETIRACETAM [Suspect]
     Indication: CONVULSION
     Dosage: 1000 MG
     Dates: end: 20090101

REACTIONS (2)
  - THROMBOCYTOPENIA [None]
  - CONVULSION [None]
